FAERS Safety Report 16148599 (Version 1)
Quarter: 2019Q2

REPORT INFORMATION
  Report Type: Report from Study
  Country: None (occurrence: US)
  Receive Date: 20190402
  Receipt Date: 20190402
  Transmission Date: 20190711
  Serious: Yes (Other)
  Sender: FDA-Public Use
  Company Number: US-ABBVIE-19S-163-2723191-00

PATIENT
  Sex: Female

DRUGS (1)
  1. LUPRON DEPOT [Suspect]
     Active Substance: LEUPROLIDE ACETATE
     Indication: UTERINE LEIOMYOMA
     Route: 065
     Dates: start: 200301, end: 201307

REACTIONS (7)
  - Cataract [Not Recovered/Not Resolved]
  - Diabetes mellitus [Unknown]
  - Tooth loss [Not Recovered/Not Resolved]
  - Blindness [Unknown]
  - Nerve compression [Not Recovered/Not Resolved]
  - Abdominal distension [Unknown]
  - Alopecia [Not Recovered/Not Resolved]

NARRATIVE: CASE EVENT DATE: 2003
